FAERS Safety Report 5239911-6 (Version None)
Quarter: 2007Q1

REPORT INFORMATION
  Report Type: 
  Country: None (occurrence: None)
  Receive Date: 20070216
  Receipt Date: 20070206
  Transmission Date: 20070707
  Serious: Yes (Hospitalization, Other)
  Sender: FDA-Public Use
  Company Number: DE-PFIZER INC-2006152725

PATIENT
  Sex: Male
  Weight: 94 kg

DRUGS (1)
  1. SUTENT [Suspect]
     Indication: METASTATIC RENAL CELL CARCINOMA
     Dosage: DAILY DOSE:50MG
     Route: 048
     Dates: start: 20061002, end: 20061207

REACTIONS (9)
  - ANAEMIA [None]
  - ASCITES [None]
  - BLOOD TEST ABNORMAL [None]
  - HEPATIC FAILURE [None]
  - ILEUS [None]
  - METASTATIC RENAL CELL CARCINOMA [None]
  - NAUSEA [None]
  - NEOPLASM PROGRESSION [None]
  - VOMITING [None]
